FAERS Safety Report 10231095 (Version 1)
Quarter: 2014Q2

REPORT INFORMATION
  Report Type: Spontaneous
  Country: US (occurrence: US)
  Receive Date: 20140611
  Receipt Date: 20140611
  Transmission Date: 20141212
  Serious: Yes (Hospitalization)
  Sender: FDA-Public Use
  Company Number: US-MYLANLABS-2014S1012947

PATIENT
  Age: 27 Year
  Sex: Female

DRUGS (10)
  1. WARFARIN [Suspect]
     Indication: INTENTIONAL OVERDOSE
     Dosage: 60 TABLETS
     Route: 048
  2. WARFARIN [Suspect]
     Indication: OFF LABEL USE
     Dosage: 60 TABLETS
     Route: 048
  3. OXYCODONE/APAP                     /01601701/ [Suspect]
     Indication: INTENTIONAL OVERDOSE
     Route: 048
  4. OXYCODONE/APAP                     /01601701/ [Suspect]
     Indication: OFF LABEL USE
     Route: 048
  5. IBUPROFEN [Suspect]
     Indication: INTENTIONAL OVERDOSE
     Route: 048
  6. IBUPROFEN [Suspect]
     Indication: OFF LABEL USE
     Route: 048
  7. NAPROXEN [Suspect]
     Indication: INTENTIONAL OVERDOSE
     Route: 048
  8. NAPROXEN [Suspect]
     Indication: OFF LABEL USE
     Route: 048
  9. NORTRIPTYLINE [Suspect]
     Indication: INTENTIONAL OVERDOSE
     Route: 048
  10. NORTRIPTYLINE [Suspect]
     Indication: OFF LABEL USE
     Route: 048

REACTIONS (2)
  - Intentional overdose [Recovered/Resolved]
  - International normalised ratio increased [Recovered/Resolved]
